FAERS Safety Report 4348305-7 (Version None)
Quarter: 2004Q2

REPORT INFORMATION
  Report Type: 
  Country: None (occurrence: None)
  Receive Date: 20040422
  Receipt Date: 20040405
  Transmission Date: 20050107
  Serious: Yes (Hospitalization)
  Sender: FDA-Public Use
  Company Number: JP_040402944

PATIENT
  Sex: Female

DRUGS (4)
  1. ONCOVIN [Suspect]
  2. BLEO (BLEOMYCIN HYDROCHLORIDE) [Concomitant]
  3. MITOMYCIN-C BULK POWDER [Concomitant]
  4. CISPLATIN [Concomitant]

REACTIONS (1)
  - INTERSTITIAL LUNG DISEASE [None]
